FAERS Safety Report 6749244-4 (Version None)
Quarter: 2010Q2

REPORT INFORMATION
  Report Type: 
  Country: None (occurrence: None)
  Receive Date: 20100601
  Receipt Date: 20100517
  Transmission Date: 20101027
  Serious: Yes (Other)
  Sender: FDA-Public Use
  Company Number: US-ASTRAZENECA-2009SE15990

PATIENT
  Sex: Female
  Weight: 72.1 kg

DRUGS (2)
  1. SEROQUEL [Suspect]
     Dosage: 50 MG TO 100 MG
     Route: 048
     Dates: start: 20061229, end: 20080319
  2. CYMBALTA [Concomitant]
     Route: 048
     Dates: start: 20061229, end: 20070201

REACTIONS (2)
  - DIABETIC GASTROPARESIS [None]
  - TYPE 2 DIABETES MELLITUS [None]
